FAERS Safety Report 8880901 (Version 2)
Quarter: 2012Q4

REPORT INFORMATION
  Report Type: 
  Country: JP (occurrence: JP)
  Receive Date: 20121101
  Receipt Date: 20121204
  Transmission Date: 20130627
  Serious: Yes (Hospitalization)
  Sender: FDA-Public Use
  Company Number: JP-PFIZER INC-2012269178

PATIENT
  Age: 7 None
  Sex: Male

DRUGS (1)
  1. SEIBULE [Suspect]
     Indication: DIABETES MELLITUS
     Dosage: 50 mg, Daily
     Route: 048

REACTIONS (5)
  - Haemolytic anaemia [Recovered/Resolved]
  - Rash [Unknown]
  - Occult blood positive [Unknown]
  - Chromaturia [Unknown]
  - Liver function test abnormal [Unknown]
